FAERS Safety Report 9359721 (Version 2)
Quarter: 2013Q3

REPORT INFORMATION
  Report Type: Report from Study
  Country: NL (occurrence: NL)
  Receive Date: 20130621
  Receipt Date: 20130704
  Transmission Date: 20140515
  Serious: Yes (Hospitalization)
  Sender: FDA-Public Use
  Company Number: NL-AMGEN-NLDCT2013042679

PATIENT
  Age: 75 Year
  Sex: Female
  Weight: 90.2 kg

DRUGS (13)
  1. ETANERCEPT [Suspect]
     Indication: PRODUCT USED FOR UNKNOWN INDICATION
     Dosage: 50 MG, QWK
     Route: 058
     Dates: start: 200908, end: 20130607
  2. OMEPRAZOL                          /00661201/ [Concomitant]
     Dosage: 20 MG, UNK
     Dates: start: 20090201
  3. METFORMIN [Concomitant]
     Dosage: 2X 500, 2X/DAY
     Dates: start: 20090201
  4. TOLBUTAMIDE [Concomitant]
     Dosage: 2X 500, 2X/DAY
     Dates: start: 20100401
  5. ACENOCOUMAROL [Concomitant]
     Dosage: UNK
     Dates: start: 20100906
  6. LANOXIN [Concomitant]
     Dosage: 0.125 UNK, UNK
     Dates: start: 20120523
  7. PROMOCARD [Concomitant]
     Dosage: 1X30 UNK, UNK
     Dates: start: 20110315
  8. HYDROCHLOROTHIAZIDE [Concomitant]
     Dosage: 1X 12.5
     Dates: start: 20100701
  9. METOPROLOL [Concomitant]
     Dosage: 200 MG, UNK
     Dates: start: 20110901
  10. LOSARTAN [Concomitant]
     Dosage: 100, 1X/DAY
     Dates: start: 20101101
  11. SIMVASTATIN [Concomitant]
     Dosage: 1X 40
     Dates: start: 20090701
  12. TRAMADOL [Concomitant]
     Dosage: 2X50, UNK, UNK
     Dates: start: 20120521
  13. PARACETAMOL [Concomitant]
     Dosage: UNK

REACTIONS (1)
  - Cardiac asthma [Recovered/Resolved]
